FAERS Safety Report 7980097-2 (Version None)
Quarter: 2011Q4

REPORT INFORMATION
  Report Type: 
  Country: None (occurrence: None)
  Receive Date: 20111214
  Receipt Date: 20111208
  Transmission Date: 20120403
  Serious: Yes (Hospitalization, Other)
  Sender: FDA-Public Use
  Company Number: SE-MERCK-1112SWE00009

PATIENT
  Age: 82 Year
  Sex: Female

DRUGS (4)
  1. ZOCOR [Concomitant]
     Route: 065
  2. ATENOLOL [Concomitant]
     Route: 065
  3. OXAZEPAM [Concomitant]
     Route: 048
  4. HYZAAR [Suspect]
     Indication: ESSENTIAL HYPERTENSION
     Route: 048
     Dates: end: 20110629

REACTIONS (3)
  - CEREBRAL HAEMORRHAGE [None]
  - HYPONATRAEMIA [None]
  - CONVULSION [None]
